FAERS Safety Report 9313370 (Version 1)
Quarter: 2013Q2

REPORT INFORMATION
  Report Type: Report from Study
  Country: US (occurrence: US)
  Receive Date: 20130528
  Receipt Date: 20130528
  Transmission Date: 20140414
  Serious: No
  Sender: FDA-Public Use
  Company Number: US-ABBOTT-13P-163-1066531-00

PATIENT
  Age: 59 Year
  Sex: Male
  Weight: 88.53 kg

DRUGS (6)
  1. ANDROGEL [Suspect]
     Indication: BLOOD TESTOSTERONE DECREASED
     Dates: start: 201203
  2. DYAZIDE [Concomitant]
     Indication: HYPERTENSION
  3. ZOLOFT [Concomitant]
     Indication: STRESS
  4. ZOCOR [Concomitant]
     Indication: BLOOD CHOLESTEROL INCREASED
  5. AGGRENOX [Concomitant]
     Indication: ANTICOAGULANT THERAPY
  6. XANAX [Concomitant]
     Indication: INSOMNIA

REACTIONS (1)
  - Prostatic specific antigen increased [Unknown]
